FAERS Safety Report 23870406 (Version 1)
Quarter: 2024Q2

REPORT INFORMATION
  Report Type: Report from Study
  Country: US (occurrence: US)
  Receive Date: 20240518
  Receipt Date: 20240518
  Transmission Date: 20240716
  Serious: Yes (Other)
  Sender: FDA-Public Use
  Company Number: US-ABBVIE-5763932

PATIENT
  Sex: Female

DRUGS (1)
  1. IMBRUVICA [Suspect]
     Active Substance: IBRUTINIB
     Indication: Chronic lymphocytic leukaemia
     Route: 048
     Dates: start: 20221101

REACTIONS (6)
  - Mammoplasty [Unknown]
  - Neutrophil count decreased [Unknown]
  - COVID-19 [Unknown]
  - White blood cell count increased [Unknown]
  - Fall [Unknown]
  - Device breakage [Unknown]
